FAERS Safety Report 8388760-9 (Version None)
Quarter: 2012Q2

REPORT INFORMATION
  Report Type: 
  Country: None (occurrence: None)
  Receive Date: 20120528
  Receipt Date: 20120516
  Transmission Date: 20120825
  Serious: Yes (Disabling)
  Sender: FDA-Public Use
  Company Number: IT-BRISTOL-MYERS SQUIBB COMPANY-16614422

PATIENT

DRUGS (4)
  1. ERBITUX [Suspect]
     Indication: COLON CANCER
     Route: 042
     Dates: start: 20090902, end: 20090929
  2. FLUOROURACIL [Concomitant]
     Indication: COLON CANCER
     Route: 042
     Dates: start: 20090709
  3. LEUCOVORIN CALCIUM [Concomitant]
     Indication: COLON CANCER
     Route: 042
     Dates: start: 20090709
  4. ELOXATIN [Concomitant]
     Indication: COLON CANCER
     Route: 042
     Dates: start: 20090709

REACTIONS (4)
  - MUCOSAL INFLAMMATION [None]
  - DIARRHOEA [None]
  - THROMBOCYTOPENIA [None]
  - RASH [None]
